FAERS Safety Report 4865453-3 (Version None)
Quarter: 2005Q4

REPORT INFORMATION
  Report Type: 
  Country: None (occurrence: None)
  Receive Date: 20051220
  Receipt Date: 20051201
  Transmission Date: 20060501
  Serious: Yes (Hospitalization)
  Sender: FDA-Public Use
  Company Number: 215583

PATIENT
  Age: 68 Year
  Sex: Female
  Weight: 46 kg

DRUGS (8)
  1. AVASTIN [Suspect]
     Indication: METASTATIC GASTRIC CANCER
     Dosage: 5 MG/KG, DAYS 1 +15, INTRAVENOUS
     Route: 042
     Dates: start: 20050323, end: 20050608
  2. DOCETAXEL(DOCETAXEL) [Suspect]
     Indication: METASTATIC GASTRIC CANCER
     Dosage: 30 MG/M2, DAYS 1,8,15 INTRAVENOUS
     Route: 042
     Dates: start: 20050323, end: 20050608
  3. ANUSOL-HC (UNITED STATES) (HYDROCORTISONE ACETATE) [Concomitant]
  4. DECADRON SRC [Concomitant]
  5. MEGACE [Concomitant]
  6. METFORMIN HCL [Concomitant]
  7. MOTRIN [Concomitant]
  8. NIFEREX-150 (POLYSACCHARIDE-IRON COMPLEX) [Concomitant]

REACTIONS (19)
  - ALPHA HAEMOLYTIC STREPTOCOCCAL INFECTION [None]
  - ANAL FISTULA [None]
  - ANION GAP INCREASED [None]
  - BACTEROIDES INFECTION [None]
  - BLOOD BICARBONATE DECREASED [None]
  - CARDIAC FAILURE CONGESTIVE [None]
  - CONFUSIONAL STATE [None]
  - CULTURE WOUND POSITIVE [None]
  - DISEASE PROGRESSION [None]
  - ESCHERICHIA INFECTION [None]
  - GASTROINTESTINAL HAEMORRHAGE [None]
  - OEDEMA PERIPHERAL [None]
  - PERICARDIAL EFFUSION [None]
  - PERIRECTAL ABSCESS [None]
  - PLATELET COUNT DECREASED [None]
  - PLEURAL EFFUSION [None]
  - PSEUDOMONAS INFECTION [None]
  - RENAL TUBULAR ACIDOSIS [None]
  - URINE OUTPUT DECREASED [None]
